FAERS Safety Report 8287567-0 (Version None)
Quarter: 2012Q2

REPORT INFORMATION
  Report Type: 
  Country: None (occurrence: None)
  Receive Date: 20120416
  Receipt Date: 20120405
  Transmission Date: 20120825
  Serious: Yes (Hospitalization, Other)
  Sender: FDA-Public Use
  Company Number: PHHY2012BR029872

PATIENT
  Sex: Male

DRUGS (2)
  1. DIOVAN [Suspect]
     Indication: HYPERTENSION
     Dosage: 1 DF (160 MG), A DAY
  2. ATENOLOL [Concomitant]
     Indication: HYPERTENSION
     Dosage: 2 DF (25 MG), A DAY

REACTIONS (9)
  - SKULL FRACTURE [None]
  - URINARY INCONTINENCE [None]
  - INFECTION [None]
  - URETHRAL DISORDER [None]
  - TONGUE DISORDER [None]
  - FALL [None]
  - NEPHROLITHIASIS [None]
  - URINARY RETENTION [None]
  - HEAD INJURY [None]
